FAERS Safety Report 10049044 (Version 1)
Quarter: 2014Q1

REPORT INFORMATION
  Report Type: Spontaneous
  Country: FR (occurrence: FR)
  Receive Date: 20140331
  Receipt Date: 20140331
  Transmission Date: 20141002
  Serious: Yes (Death, Hospitalization, Other)
  Sender: FDA-Public Use
  Company Number: FR-ASTRAZENECA-2014SE21840

PATIENT
  Age: 32654 Day
  Sex: Female
  Weight: 60 kg

DRUGS (8)
  1. CRESTOR [Suspect]
     Indication: DYSLIPIDAEMIA
     Route: 048
     Dates: start: 2009
  2. PLAVIX [Concomitant]
     Route: 048
     Dates: start: 2009
  3. APROVEL [Concomitant]
     Indication: HYPERTENSION
     Route: 048
     Dates: start: 2009
  4. IPERTEN [Concomitant]
     Indication: HYPERTENSION
     Route: 048
     Dates: start: 2009
  5. TEMERIT [Concomitant]
     Indication: HYPERTENSION
     Route: 048
     Dates: start: 2009
  6. INEXIUM [Concomitant]
     Route: 048
     Dates: start: 2009
  7. CEFTRIAXONE [Concomitant]
     Route: 030
     Dates: start: 20140207
  8. LEVOFLOXACINE [Concomitant]
     Route: 048
     Dates: start: 20140207

REACTIONS (8)
  - Interstitial lung disease [Fatal]
  - Acute respiratory distress syndrome [Fatal]
  - Respiratory acidosis [Fatal]
  - C-reactive protein increased [Unknown]
  - Tachypnoea [Unknown]
  - Cardiomegaly [Unknown]
  - Microcytic anaemia [Unknown]
  - Sinus tachycardia [Unknown]
